FAERS Safety Report 10043665 (Version 1)
Quarter: 2014Q1

REPORT INFORMATION
  Report Type: Spontaneous
  Country: US (occurrence: US)
  Receive Date: 20140328
  Receipt Date: 20140328
  Transmission Date: 20141002
  Serious: Yes (Other)
  Sender: FDA-Public Use
  Company Number: US-ASTRAZENECA-2014SE20188

PATIENT
  Age: 67 Year
  Sex: Female
  Weight: 61.7 kg

DRUGS (11)
  1. NEXIUM [Suspect]
     Indication: DYSPEPSIA
     Route: 048
     Dates: start: 20140308
  2. NEXIUM [Suspect]
     Indication: PAIN
     Route: 048
     Dates: start: 20140308
  3. NEXIUM [Suspect]
     Indication: ERUCTATION
     Route: 048
     Dates: start: 20140308
  4. PRILOSEC PRESCRIPTION [Suspect]
     Indication: ERUCTATION
     Route: 048
     Dates: start: 2013, end: 2013
  5. PRILOSEC PRESCRIPTION [Suspect]
     Indication: DYSPEPSIA
     Route: 048
     Dates: start: 2013, end: 2013
  6. LEVOTHYROXINE [Concomitant]
     Indication: THYROID DISORDER
     Route: 048
     Dates: start: 2007
  7. HYOSCYAMINE SULF [Concomitant]
     Indication: MUSCLE SPASMS
     Route: 048
  8. DILTIAZEM HCL [Concomitant]
     Indication: CARDIAC DISORDER
     Route: 048
     Dates: start: 2007
  9. ASPIRIN [Concomitant]
     Indication: THROMBOSIS PROPHYLAXIS
     Route: 048
     Dates: start: 2007
  10. ANTIHISTAMINE [Concomitant]
     Indication: SCRATCH
     Dosage: PRN
     Route: 048
  11. ANTIHISTAMINE [Concomitant]
     Indication: PRURITUS
     Dosage: PRN
     Route: 048

REACTIONS (9)
  - Chest pain [Recovered/Resolved]
  - Cold sweat [Unknown]
  - Adverse event [Recovered/Resolved]
  - Hypertension [Unknown]
  - Oesophageal food impaction [Not Recovered/Not Resolved]
  - Weight decreased [Not Recovered/Not Resolved]
  - Rash [Unknown]
  - Abdominal pain upper [Unknown]
  - Off label use [Unknown]
